FAERS Safety Report 15369710 (Version 1)
Quarter: 2018Q3

REPORT INFORMATION
  Report Type: Spontaneous
  Country: US (occurrence: US)
  Receive Date: 20180911
  Receipt Date: 20180911
  Transmission Date: 20181010
  Serious: Yes (Hospitalization, Other)
  Sender: FDA-Public Use
  Company Number: US-AUROBINDO-AUR-APL-2018-044155

PATIENT
  Age: 72 Year
  Sex: Female

DRUGS (3)
  1. SULFAMETHOXAZOLE AND TRIMETHOPRIM 800/160 MG [Suspect]
     Active Substance: SULFAMETHOXAZOLE\TRIMETHOPRIM
     Indication: URINARY TRACT INFECTION
     Dosage: 160/800 MILLIGRAM, TWO TIMES A DAY FRO 5 DAYS
     Route: 065
  2. SERTRALINE [Concomitant]
     Active Substance: SERTRALINE HYDROCHLORIDE
     Indication: MAJOR DEPRESSION
     Dosage: 75 MILLIGRAM
     Route: 065
  3. SERTRALINE [Concomitant]
     Active Substance: SERTRALINE HYDROCHLORIDE
     Dosage: 100 MILLIGRAM
     Route: 065

REACTIONS (9)
  - Anxiety [Recovered/Resolved]
  - Insomnia [Unknown]
  - Fatigue [Unknown]
  - Emotional disorder [Unknown]
  - Anhedonia [Unknown]
  - Decreased appetite [Unknown]
  - Depressed mood [Recovered/Resolved]
  - Tachyphrenia [Unknown]
  - Crying [Unknown]
